FAERS Safety Report 19432951 (Version 1)
Quarter: 2021Q2

REPORT INFORMATION
  Report Type: Spontaneous
  Country: FR (occurrence: FR)
  Receive Date: 20210618
  Receipt Date: 20210618
  Transmission Date: 20210717
  Serious: Yes (Other)
  Sender: FDA-Public Use
  Company Number: FR-AUROBINDO-AUR-APL-2021-024683

PATIENT
  Age: 24 Year
  Sex: Female

DRUGS (2)
  1. TRAMADOL TABLET [Suspect]
     Active Substance: TRAMADOL
     Indication: PRODUCT USE IN UNAPPROVED INDICATION
     Dosage: UNK (05/17/2021: 4 TABLETS OF 50 MG + 4 TABLETS OF A SPANISH SPECIALTY CONTAINING TRAMADOL)
     Route: 048
  2. DIAZEPAM TABLET [Suspect]
     Active Substance: DIAZEPAM
     Indication: PRODUCT USED FOR UNKNOWN INDICATION
     Dosage: UNK (4 TABLETS OF 5 MG ON 05/17/2021)
     Route: 048
     Dates: start: 2021

REACTIONS (3)
  - Altered state of consciousness [Recovered/Resolved]
  - Toxicity to various agents [Recovered/Resolved]
  - Intentional product misuse [Unknown]

NARRATIVE: CASE EVENT DATE: 20210517
